FAERS Safety Report 10658434 (Version 3)
Quarter: 2015Q1

REPORT INFORMATION
  Report Type: Spontaneous
  Country: US (occurrence: US)
  Receive Date: 20141217
  Receipt Date: 20150105
  Transmission Date: 20150720
  Serious: Yes (Hospitalization, Other)
  Sender: FDA-Public Use
  Company Number: US-GLAXOSMITHKLINE-A1067347A

PATIENT
  Sex: Female

DRUGS (7)
  1. GLIMEPIRIDE. [Concomitant]
     Active Substance: GLIMEPIRIDE
  2. VOTRIENT [Suspect]
     Active Substance: PAZOPANIB HYDROCHLORIDE
     Indication: LUNG NEOPLASM MALIGNANT
     Route: 048
     Dates: start: 201303
  3. GABAPENTIN. [Concomitant]
     Active Substance: GABAPENTIN
  4. DILTIAZEM [Concomitant]
     Active Substance: DILTIAZEM
  5. OMEPRAZOLE. [Concomitant]
     Active Substance: OMEPRAZOLE
  6. POTASSIUM [Concomitant]
     Active Substance: POTASSIUM
  7. MAGNESIUM [Concomitant]
     Active Substance: MAGNESIUM

REACTIONS (9)
  - Urticaria [Not Recovered/Not Resolved]
  - Skin discolouration [Unknown]
  - Muscle spasms [Unknown]
  - Myalgia [Unknown]
  - Pneumonia [Unknown]
  - Lung disorder [Unknown]
  - Rash [Unknown]
  - Dyspnoea [Unknown]
  - Vascular rupture [Unknown]
